FAERS Safety Report 15271864 (Version 7)
Quarter: 2019Q1

REPORT INFORMATION
  Report Type: Report from Study
  Country: US (occurrence: US)
  Receive Date: 20180813
  Receipt Date: 20190307
  Transmission Date: 20190417
  Serious: Yes (Hospitalization, Other)
  Sender: FDA-Public Use
  Company Number: PHEH2018US032894

PATIENT
  Sex: Male
  Weight: 77.1 kg

DRUGS (2)
  1. ENTRESTO [Suspect]
     Active Substance: SACUBITRIL\VALSARTAN
     Indication: CARDIAC FAILURE
     Dosage: UNK
     Route: 048
  2. ELIQUIS [Concomitant]
     Active Substance: APIXABAN
     Indication: PRODUCT USED FOR UNKNOWN INDICATION
     Dosage: UNK UNK, BID
     Route: 065

REACTIONS (13)
  - Abdominal discomfort [Unknown]
  - Weight decreased [Unknown]
  - Abdominal distension [Unknown]
  - Gallbladder disorder [Unknown]
  - Diarrhoea [Unknown]
  - Renal disorder [Unknown]
  - Cough [Unknown]
  - Deafness [Unknown]
  - Feeling cold [Unknown]
  - Drug interaction [Unknown]
  - General physical health deterioration [Unknown]
  - Feeling abnormal [Unknown]
  - Peripheral coldness [Unknown]
